FAERS Safety Report 8846820 (Version 1)
Quarter: 2012Q4

REPORT INFORMATION
  Report Type: 
  Country: US (occurrence: US)
  Receive Date: 20121018
  Receipt Date: 20121018
  Transmission Date: 20130627
  Serious: No
  Sender: FDA-Public Use
  Company Number: US-PFIZER INC-2012259275

PATIENT
  Age: 73 Year
  Sex: Female
  Weight: 81.18 kg

DRUGS (2)
  1. EFFEXOR XR [Suspect]
     Indication: ANXIETY
     Dosage: 150 mg, daily at night
     Dates: end: 20121014
  2. EFFEXOR XR [Suspect]
     Dosage: UNK
     Dates: start: 20121016

REACTIONS (3)
  - Weight decreased [Unknown]
  - Headache [Recovered/Resolved]
  - Anxiety [Recovered/Resolved]
